FAERS Safety Report 22361784 (Version 3)
Quarter: 2023Q2

REPORT INFORMATION
  Report Type: Report from Study
  Country: CA (occurrence: CA)
  Receive Date: 20230524
  Receipt Date: 20230608
  Transmission Date: 20230722
  Serious: Yes (Other)
  Sender: FDA-Public Use
  Company Number: CA-PFIZER INC-PV202300088402

PATIENT
  Age: 40 Year
  Sex: Male
  Weight: 62.9 kg

DRUGS (5)
  1. ENCORAFENIB [Suspect]
     Active Substance: ENCORAFENIB
     Indication: Colorectal cancer
     Dosage: 300 MG, EVERYDAY, PILL
     Route: 048
     Dates: start: 20220928, end: 20230504
  2. CETUXIMAB [Suspect]
     Active Substance: CETUXIMAB
     Indication: Colorectal cancer
     Dosage: 848 MG, EVERY TWO WEEKS
     Route: 042
     Dates: start: 20220928, end: 20230426
  3. DEXAMETHASONE [Concomitant]
     Active Substance: DEXAMETHASONE
     Indication: Prophylaxis of nausea and vomiting
     Dosage: 10 MG, EVERY TWO WEEKS
     Route: 048
     Dates: start: 20220928
  4. DIPHENHYDRAMINE [Concomitant]
     Active Substance: DIPHENHYDRAMINE
     Indication: Allergy prophylaxis
     Dosage: 50 MG, EVERY TWO WEEKS
     Dates: start: 20220928, end: 20230426
  5. OLANZAPINE [Concomitant]
     Active Substance: OLANZAPINE
     Indication: Prophylaxis of nausea and vomiting
     Dosage: 2.5 MG, EVERY TWO WEEKS
     Route: 048
     Dates: start: 20220928

REACTIONS (1)
  - Dysplastic naevus [Recovering/Resolving]

NARRATIVE: CASE EVENT DATE: 20230119
